FAERS Safety Report 5797076-6 (Version None)
Quarter: 2008Q3

REPORT INFORMATION
  Report Type: 
  Country: None (occurrence: None)
  Receive Date: 20080701
  Receipt Date: 20080624
  Transmission Date: 20090109
  Serious: Yes (Other)
  Sender: FDA-Public Use
  Company Number: GR-ASTRAZENECA-2008AC01633

PATIENT
  Age: 38 Year
  Sex: Female

DRUGS (1)
  1. LOSEC I.V. [Suspect]
     Indication: PEPTIC ULCER

REACTIONS (10)
  - ANAPHYLACTIC REACTION [None]
  - ANGIOEDEMA [None]
  - BRONCHOSPASM [None]
  - DIZZINESS [None]
  - EYELID OEDEMA [None]
  - FALL [None]
  - NASAL OEDEMA [None]
  - NAUSEA [None]
  - PRURITUS [None]
  - URTICARIA [None]
